FAERS Safety Report 14998217 (Version 2)
Quarter: 2018Q2

REPORT INFORMATION
  Report Type: Report from Study
  Country: BE (occurrence: BE)
  Receive Date: 20180611
  Receipt Date: 20180622
  Transmission Date: 20180711
  Serious: Yes (Other)
  Sender: FDA-Public Use
  Company Number: PHHY2012BE122226

PATIENT
  Age: 45 Year
  Sex: Male

DRUGS (4)
  1. CRESTOR [Concomitant]
     Active Substance: ROSUVASTATIN CALCIUM
     Indication: HYPERCHOLESTEROLAEMIA
     Dosage: UNK
     Route: 048
  2. GILENYA [Suspect]
     Active Substance: FINGOLIMOD HYDROCHLORIDE
     Indication: MULTIPLE SCLEROSIS
     Dosage: 0.5 MG, QD
     Route: 048
     Dates: start: 20121115
  3. D-CURE [Concomitant]
     Active Substance: CHOLECALCIFEROL
     Indication: VITAMIN D DEFICIENCY
     Dosage: UNK
     Route: 065
     Dates: start: 20171124
  4. AMLODIPINE [Concomitant]
     Active Substance: AMLODIPINE BESYLATE
     Indication: PRODUCT USED FOR UNKNOWN INDICATION
     Dosage: UNK
     Route: 048

REACTIONS (9)
  - White blood cell count decreased [Unknown]
  - Gait disturbance [Unknown]
  - Gamma-glutamyltransferase increased [Recovering/Resolving]
  - Lymphocyte count decreased [Not Recovered/Not Resolved]
  - Depressed mood [Unknown]
  - Alanine aminotransferase increased [Recovering/Resolving]
  - Balance disorder [Unknown]
  - Aspartate aminotransferase increased [Recovering/Resolving]
  - Blood cholesterol increased [Unknown]

NARRATIVE: CASE EVENT DATE: 20121119
